FAERS Safety Report 4436131-X (Version None)
Quarter: 2004Q3

REPORT INFORMATION
  Report Type: 
  Country: None (occurrence: None)
  Receive Date: 20040728
  Receipt Date: 20040427
  Transmission Date: 20050211
  Serious: Yes (Hospitalization)
  Sender: FDA-Public Use
  Company Number: 206171

PATIENT
  Age: 35 Year
  Sex: Male
  Weight: 88.4 kg

DRUGS (4)
  1. RITUXAN [Suspect]
     Indication: LYMPHOMA
     Dosage: 770 MG, Q3W, INTRAVENOUS
     Route: 042
     Dates: start: 20040427
  2. CYCLOPHOSPHAMIDE [Concomitant]
  3. DOXORUBICIN HCL [Concomitant]
  4. VINCRISTINE [Concomitant]

REACTIONS (1)
  - URTICARIA [None]
